FAERS Safety Report 17332409 (Version 1)
Quarter: 2020Q1

REPORT INFORMATION
  Report Type: Report from Study
  Country: AU (occurrence: AU)
  Receive Date: 20200128
  Receipt Date: 20200128
  Transmission Date: 20200409
  Serious: Yes (Hospitalization)
  Sender: FDA-Public Use
  Company Number: AU-ASTRAZENECA-2020SE02285

PATIENT
  Age: 80 Year
  Sex: Male

DRUGS (49)
  1. RITUXIMAB. [Suspect]
     Active Substance: RITUXIMAB
     Indication: MANTLE CELL LYMPHOMA STAGE IV
     Dosage: 815.0MG/M2 ONCE/SINGLE ADMINISTRATION
     Route: 042
     Dates: start: 20190313, end: 20190313
  2. RITUXIMAB. [Suspect]
     Active Substance: RITUXIMAB
     Indication: MANTLE CELL LYMPHOMA STAGE IV
     Dosage: 815.0MG/M2 ONCE/SINGLE ADMINISTRATION
     Route: 042
     Dates: start: 20190417, end: 20190417
  3. BENDAMUSTINE [Suspect]
     Active Substance: BENDAMUSTINE
     Indication: MANTLE CELL LYMPHOMA STAGE IV
     Dosage: 195.0MG/M2 ONCE/SINGLE ADMINISTRATION
     Route: 042
     Dates: start: 20190314, end: 20190314
  4. GRANISETRON [Concomitant]
     Active Substance: GRANISETRON
     Indication: PREMEDICATION
     Dosage: 3.0MG AS REQUIRED
     Route: 042
     Dates: start: 20190213
  5. PARACETAMOL [Concomitant]
     Active Substance: ACETAMINOPHEN
     Indication: PREMEDICATION
     Dosage: 1000.0MG AS REQUIRED
     Route: 048
     Dates: start: 20190213
  6. PREDNISOLONE. [Concomitant]
     Active Substance: PREDNISOLONE
     Indication: PREMEDICATION
     Dosage: 100.0MG AS REQUIRED
     Route: 048
     Dates: start: 20190213
  7. ONDANSETRON [Concomitant]
     Active Substance: ONDANSETRON
     Indication: PROPHYLAXIS OF NAUSEA AND VOMITING
     Route: 048
     Dates: start: 20190214
  8. ACALABRUTINIB. [Suspect]
     Active Substance: ACALABRUTINIB
     Indication: MANTLE CELL LYMPHOMA STAGE IV
     Route: 048
     Dates: start: 20190703, end: 20190730
  9. BENDAMUSTINE [Suspect]
     Active Substance: BENDAMUSTINE
     Indication: MANTLE CELL LYMPHOMA STAGE IV
     Dosage: 152.5MG/M2 ONCE/SINGLE ADMINISTRATION
     Route: 042
     Dates: start: 20190417, end: 20190417
  10. METOCLOPRAMIDE. [Concomitant]
     Active Substance: METOCLOPRAMIDE
     Indication: PROPHYLAXIS OF NAUSEA AND VOMITING
     Dosage: 10.0MG AS REQUIRED
     Route: 048
     Dates: start: 20190213
  11. ACALABRUTINIB. [Suspect]
     Active Substance: ACALABRUTINIB
     Indication: MANTLE CELL LYMPHOMA STAGE IV
     Route: 048
     Dates: start: 20190417, end: 20190507
  12. ACALABRUTINIB. [Suspect]
     Active Substance: ACALABRUTINIB
     Indication: MANTLE CELL LYMPHOMA STAGE IV
     Dosage: END OF STUDY TREATMENT
     Route: 048
     Dates: start: 20191120, end: 20191216
  13. BENDAMUSTINE [Suspect]
     Active Substance: BENDAMUSTINE
     Indication: MANTLE CELL LYMPHOMA STAGE IV
     Dosage: 152.5MG/M2 ONCE/SINGLE ADMINISTRATION
     Route: 042
     Dates: start: 20190418, end: 20190418
  14. VALACICLOVIR [Concomitant]
     Active Substance: VALACYCLOVIR HYDROCHLORIDE
     Indication: VIRAL INFECTION
     Route: 048
     Dates: start: 20190213
  15. METFORMIN [Concomitant]
     Active Substance: METFORMIN HYDROCHLORIDE
     Indication: DIABETES MELLITUS
     Route: 048
     Dates: start: 2008
  16. ACALABRUTINIB. [Suspect]
     Active Substance: ACALABRUTINIB
     Indication: MANTLE CELL LYMPHOMA STAGE IV
     Route: 048
     Dates: start: 20190605, end: 20190702
  17. RITUXIMAB. [Suspect]
     Active Substance: RITUXIMAB
     Indication: MANTLE CELL LYMPHOMA STAGE IV
     Dosage: 815.0MG/M2 ONCE/SINGLE ADMINISTRATION
     Route: 042
     Dates: start: 20190515, end: 20190515
  18. RITUXIMAB. [Suspect]
     Active Substance: RITUXIMAB
     Indication: MANTLE CELL LYMPHOMA STAGE IV
     Dosage: 770.0MG/M2 ONCE/SINGLE ADMINISTRATION
     Route: 042
     Dates: start: 20190710, end: 20190710
  19. RITUXIMAB. [Suspect]
     Active Substance: RITUXIMAB
     Indication: MANTLE CELL LYMPHOMA STAGE IV
     Dosage: 770.0MG/M2 ONCE/SINGLE ADMINISTRATION
     Route: 042
     Dates: start: 20190827, end: 20190927
  20. BENDAMUSTINE [Suspect]
     Active Substance: BENDAMUSTINE
     Indication: MANTLE CELL LYMPHOMA STAGE IV
     Dosage: 152.5MG/M2 ONCE/SINGLE ADMINISTRATION
     Route: 042
     Dates: start: 20190516, end: 20190516
  21. SODIUM CHLORIDE 0.9% [Concomitant]
     Active Substance: SODIUM CHLORIDE
     Indication: PREMEDICATION
     Dosage: 100.0ML AS REQUIRED
     Route: 042
     Dates: start: 20190213
  22. ACALABRUTINIB. [Suspect]
     Active Substance: ACALABRUTINIB
     Indication: MANTLE CELL LYMPHOMA STAGE IV
     Route: 048
     Dates: start: 20190314, end: 20190408
  23. ACALABRUTINIB. [Suspect]
     Active Substance: ACALABRUTINIB
     Indication: MANTLE CELL LYMPHOMA STAGE IV
     Route: 048
     Dates: start: 20190828, end: 20190923
  24. RITUXIMAB. [Suspect]
     Active Substance: RITUXIMAB
     Indication: MANTLE CELL LYMPHOMA STAGE IV
     Dosage: END OF STUDY TREATMENT770.0MG/M2 ONCE/SINGLE ADMINISTRATION
     Route: 042
     Dates: start: 20191022, end: 20191022
  25. BENDAMUSTINE [Suspect]
     Active Substance: BENDAMUSTINE
     Indication: MANTLE CELL LYMPHOMA STAGE IV
     Dosage: 195.0MG/M2 ONCE/SINGLE ADMINISTRATION
     Route: 042
     Dates: start: 20190313, end: 20190313
  26. FAB IRON LIQUID IRON [Concomitant]
     Indication: GENERAL PHYSICAL CONDITION NORMAL
     Dosage: 10.0ML AS REQUIRED
     Route: 048
     Dates: start: 201809
  27. RANITIDINE. [Concomitant]
     Active Substance: RANITIDINE
     Indication: PROPHYLAXIS
     Route: 048
     Dates: start: 20190208
  28. RESPRIM FORTE [Concomitant]
     Active Substance: SULFAMETHOXAZOLE\TRIMETHOPRIM
     Indication: PROPHYLAXIS
     Dosage: 1 TABLET, TWICE A WEEK
     Route: 048
     Dates: start: 20190213
  29. RITUXIMAB. [Suspect]
     Active Substance: RITUXIMAB
     Indication: MANTLE CELL LYMPHOMA STAGE IV
     Dosage: 815.0MG/M2 ONCE/SINGLE ADMINISTRATION
     Route: 042
     Dates: start: 20190213, end: 20190213
  30. BENDAMUSTINE [Suspect]
     Active Substance: BENDAMUSTINE
     Indication: MANTLE CELL LYMPHOMA STAGE IV
     Dosage: 145.0MG/M2 ONCE/SINGLE ADMINISTRATION
     Route: 042
     Dates: start: 20190710, end: 20190710
  31. URAL [Concomitant]
     Indication: BENIGN PROSTATIC HYPERPLASIA
     Dosage: 1 SACHET, AS NEEDED
     Route: 048
     Dates: start: 2012
  32. ACALABRUTINIB. [Suspect]
     Active Substance: ACALABRUTINIB
     Indication: MANTLE CELL LYMPHOMA STAGE IV
     Route: 048
     Dates: start: 20190213, end: 20190312
  33. ACALABRUTINIB. [Suspect]
     Active Substance: ACALABRUTINIB
     Indication: MANTLE CELL LYMPHOMA STAGE IV
     Route: 048
     Dates: start: 20190508, end: 20190604
  34. BENDAMUSTINE [Suspect]
     Active Substance: BENDAMUSTINE
     Indication: MANTLE CELL LYMPHOMA STAGE IV
     Dosage: 195.0MG/M2 ONCE/SINGLE ADMINISTRATION
     Route: 042
     Dates: start: 20190213, end: 20190213
  35. BENDAMUSTINE [Suspect]
     Active Substance: BENDAMUSTINE
     Indication: MANTLE CELL LYMPHOMA STAGE IV
     Dosage: 195.0MG/M2 ONCE/SINGLE ADMINISTRATION
     Route: 042
     Dates: start: 20190214, end: 20190214
  36. BENDAMUSTINE [Suspect]
     Active Substance: BENDAMUSTINE
     Indication: MANTLE CELL LYMPHOMA STAGE IV
     Dosage: 152.5MG/M2 ONCE/SINGLE ADMINISTRATION
     Route: 042
     Dates: start: 20190515, end: 20190515
  37. BENDAMUSTINE [Suspect]
     Active Substance: BENDAMUSTINE
     Indication: MANTLE CELL LYMPHOMA STAGE IV
     Dosage: 145.0MG/M2 ONCE/SINGLE ADMINISTRATION
     Route: 042
     Dates: start: 20190612, end: 20190612
  38. BENDAMUSTINE [Suspect]
     Active Substance: BENDAMUSTINE
     Indication: MANTLE CELL LYMPHOMA STAGE IV
     Dosage: END OF STUDY TREATMENT145.0MG/M2 ONCE/SINGLE ADMINISTRATION
     Route: 042
     Dates: start: 20190711, end: 20190711
  39. LORATADINE. [Concomitant]
     Active Substance: LORATADINE
     Indication: PREMEDICATION
     Dosage: 10.0MG AS REQUIRED
     Route: 048
     Dates: start: 20190213
  40. SODIUM BICARBONATE. [Concomitant]
     Active Substance: SODIUM BICARBONATE
     Indication: PROPHYLAXIS
     Route: 050
     Dates: start: 20190213
  41. ACALABRUTINIB. [Suspect]
     Active Substance: ACALABRUTINIB
     Indication: MANTLE CELL LYMPHOMA STAGE IV
     Dosage: 200 MG, OTHER
     Route: 048
     Dates: start: 20190313, end: 20190313
  42. ACALABRUTINIB. [Suspect]
     Active Substance: ACALABRUTINIB
     Indication: MANTLE CELL LYMPHOMA STAGE IV
     Route: 048
     Dates: start: 20190409, end: 20190409
  43. ACALABRUTINIB. [Suspect]
     Active Substance: ACALABRUTINIB
     Indication: MANTLE CELL LYMPHOMA STAGE IV
     Route: 048
     Dates: start: 20190731, end: 20190827
  44. ACALABRUTINIB. [Suspect]
     Active Substance: ACALABRUTINIB
     Indication: MANTLE CELL LYMPHOMA STAGE IV
     Route: 048
     Dates: start: 20190924, end: 20191022
  45. ACALABRUTINIB. [Suspect]
     Active Substance: ACALABRUTINIB
     Indication: MANTLE CELL LYMPHOMA STAGE IV
     Route: 048
     Dates: start: 20191023, end: 20191119
  46. RITUXIMAB. [Suspect]
     Active Substance: RITUXIMAB
     Indication: MANTLE CELL LYMPHOMA STAGE IV
     Dosage: 770.0MG/M2 ONCE/SINGLE ADMINISTRATION
     Route: 042
     Dates: start: 20190612, end: 20190612
  47. BENDAMUSTINE [Suspect]
     Active Substance: BENDAMUSTINE
     Indication: MANTLE CELL LYMPHOMA STAGE IV
     Dosage: 145.0MG/M2 ONCE/SINGLE ADMINISTRATION
     Route: 042
     Dates: start: 20190613, end: 20190613
  48. METAMUCIL [Concomitant]
     Active Substance: PLANTAGO SEED
     Indication: GENERAL PHYSICAL CONDITION NORMAL
     Dosage: 5.9G AS REQUIRED
     Route: 048
     Dates: start: 2009
  49. RANITIDINE. [Concomitant]
     Active Substance: RANITIDINE
     Indication: GASTRIC ULCER
     Route: 048
     Dates: start: 20190208

REACTIONS (1)
  - Pseudomonal bacteraemia [Recovered/Resolved]

NARRATIVE: CASE EVENT DATE: 20200103
